FAERS Safety Report 9325827 (Version 1)
Quarter: 2013Q2

REPORT INFORMATION
  Report Type: Spontaneous
  Country: US (occurrence: None)
  Receive Date: 20130603
  Receipt Date: 20130603
  Transmission Date: 20140414
  Serious: Yes (Other)
  Sender: FDA-Public Use
  Company Number: None

PATIENT
  Age: 71 None
  Sex: Female
  Weight: 57.15 kg

DRUGS (8)
  1. QVAR [Suspect]
     Indication: ASTHMA
     Dosage: 4 PUFF TWICE DAILY BY MOUTH INHALATION
     Route: 048
  2. QVAR [Suspect]
     Indication: RESPIRATORY DISORDER
     Dosage: 4 PUFF TWICE DAILY BY MOUTH INHALATION
     Route: 048
  3. SERVENT [Concomitant]
  4. QVAR [Concomitant]
  5. PREDNISONE [Concomitant]
  6. MULTIVITAMIN [Concomitant]
  7. CA [Concomitant]
  8. VIT D [Concomitant]

REACTIONS (6)
  - Incorrect dose administered [None]
  - Device malfunction [None]
  - Product quality issue [None]
  - Dyspnoea [None]
  - Muscle twitching [None]
  - Accidental exposure to product [None]
